FAERS Safety Report 10776006 (Version 2)
Quarter: 2015Q1

REPORT INFORMATION
  Report Type: Report from Study
  Country: NL (occurrence: NL)
  Receive Date: 20150209
  Receipt Date: 20150309
  Transmission Date: 20150721
  Serious: Yes (Life-Threatening, Other)
  Sender: FDA-Public Use
  Company Number: NL-PFIZER INC-2015050890

PATIENT
  Age: 5 Month
  Sex: Female

DRUGS (2)
  1. ATENOLOL. [Suspect]
     Active Substance: ATENOLOL
     Indication: INFANTILE HAEMANGIOMA
     Dosage: 0.5 MG/KG, 1X/DAY
  2. ATENOLOL. [Suspect]
     Active Substance: ATENOLOL
     Dosage: 1 MG/KG, DAILY

REACTIONS (3)
  - Somnolence [Recovered/Resolved]
  - Hypoglycaemia [Recovered/Resolved]
  - Hypotonia [Recovered/Resolved]
